FAERS Safety Report 6720722-7 (Version None)
Quarter: 2010Q2

REPORT INFORMATION
  Report Type: 
  Country: None (occurrence: None)
  Receive Date: 20100512
  Receipt Date: 20100506
  Transmission Date: 20101027
  Serious: Yes (Death)
  Sender: FDA-Public Use
  Company Number: US-BIOGENIDEC-2010BI014476

PATIENT
  Age: 53 Year
  Sex: Female
  Weight: 56 kg

DRUGS (10)
  1. TYSABRI [Suspect]
     Indication: MULTIPLE SCLEROSIS
     Route: 042
     Dates: start: 20080125, end: 20100120
  2. SYNTHROID [Concomitant]
     Indication: HYPOTHYROIDISM
     Dosage: DOSE UNIT:75
     Route: 048
     Dates: start: 19890101, end: 20100428
  3. BACLOFEN [Concomitant]
     Indication: MUSCLE SPASMS
     Route: 048
     Dates: start: 20000101, end: 20100428
  4. HYDROCODONE BITARTRATE [Concomitant]
     Indication: PAIN
     Route: 048
     Dates: start: 20030101, end: 20100428
  5. RESTORIL [Concomitant]
     Indication: INSOMNIA
     Route: 048
     Dates: start: 20090101, end: 20100428
  6. PROVIGIL [Concomitant]
     Indication: FATIGUE
     Route: 048
     Dates: start: 20070101, end: 20100428
  7. LEXAPRO [Concomitant]
     Indication: DEPRESSION
     Route: 048
     Dates: start: 20030101, end: 20100428
  8. TEGRETOL [Concomitant]
     Indication: DRUG USE FOR UNKNOWN INDICATION
     Route: 048
     Dates: end: 20100428
  9. OXYBUTYNIN [Concomitant]
     Indication: DRUG USE FOR UNKNOWN INDICATION
     Dates: end: 20100428
  10. FOSAMAX [Concomitant]
     Indication: DRUG USE FOR UNKNOWN INDICATION

REACTIONS (1)
  - BRAIN INJURY [None]
